FAERS Safety Report 9248051 (Version 3)
Quarter: 2013Q4

REPORT INFORMATION
  Report Type: Spontaneous
  Country: US (occurrence: US)
  Receive Date: 20130423
  Receipt Date: 20131004
  Transmission Date: 20140711
  Serious: No
  Sender: FDA-Public Use
  Company Number: US-ASTRAZENECA-2013SE27279

PATIENT
  Age: 681 Month
  Sex: Female

DRUGS (11)
  1. NEXIUM [Suspect]
     Indication: GASTROOESOPHAGEAL REFLUX DISEASE
     Route: 048
     Dates: start: 1980, end: 2004
  2. NEXIUM [Suspect]
     Indication: GASTROOESOPHAGEAL REFLUX DISEASE
     Route: 048
     Dates: start: 20040404
  3. BABY ASPIRIN [Concomitant]
  4. SINGULAIR [Concomitant]
     Dates: start: 201302
  5. PERCOCET [Concomitant]
     Indication: PAIN
     Dosage: 10-650 MG TAKE 1 TABLET BY MOUTH 2 TIMES DAILY
     Route: 048
     Dates: start: 201302
  6. PROTONIX [Concomitant]
     Route: 048
     Dates: start: 201302
  7. DELTASONE [Concomitant]
     Route: 048
     Dates: start: 201302
  8. ZOCOR [Concomitant]
     Route: 048
     Dates: start: 201302
  9. GLIPIZIDE [Concomitant]
     Dates: start: 20030925
  10. AVANDIA [Concomitant]
     Dates: start: 20030925
  11. LOTENSIN [Concomitant]
     Dates: start: 20031007

REACTIONS (9)
  - Osteoporosis [Unknown]
  - Bone disorder [Unknown]
  - Multiple fractures [Unknown]
  - Arthritis [Unknown]
  - Calcium deficiency [Unknown]
  - Lung disorder [Unknown]
  - Diabetes mellitus [Unknown]
  - Vitamin D deficiency [Unknown]
  - Osteoarthritis [Unknown]
